FAERS Safety Report 8317149-3 (Version None)
Quarter: 2012Q2

REPORT INFORMATION
  Report Type: 
  Country: None (occurrence: None)
  Receive Date: 20120425
  Receipt Date: 20120413
  Transmission Date: 20120825
  Serious: Yes (Hospitalization)
  Sender: FDA-Public Use
  Company Number: AUR-APL-2012-01602

PATIENT
  Age: 61 Year
  Sex: Female

DRUGS (6)
  1. PAROXETINE HCL [Suspect]
     Indication: PRODUCT USED FOR UNKNOWN INDICATION
     Dosage: 550 MG, TOTAL, ORAL
     Route: 048
     Dates: start: 20120307, end: 20120307
  2. ASPIRIN [Concomitant]
  3. ZOLOFT [Suspect]
     Indication: PRODUCT USED FOR UNKNOWN INDICATION
     Dosage: 15 DOSAGE FORMS, ORAL
     Route: 048
     Dates: start: 20120307, end: 20120307
  4. ZOLPIDEM [Suspect]
     Indication: PRODUCT USED FOR UNKNOWN INDICATION
     Dosage: 15 DOSAGE FORMS, ORAL
     Route: 048
     Dates: start: 20120307, end: 20120307
  5. CLONAZEPAM [Concomitant]
  6. LORAZEPAM [Suspect]
     Indication: PRODUCT USED FOR UNKNOWN INDICATION
     Dosage: 20 DOAGES FORMS, ORAL
     Route: 048
     Dates: start: 20120307, end: 20120307

REACTIONS (5)
  - BRADYKINESIA [None]
  - BRADYPHRENIA [None]
  - MULTIPLE DRUG OVERDOSE INTENTIONAL [None]
  - APRAXIA [None]
  - SUICIDE ATTEMPT [None]
